FAERS Safety Report 4518304-0 (Version None)
Quarter: 2004Q4

REPORT INFORMATION
  Report Type: 
  Country: None (occurrence: None)
  Receive Date: 20041202
  Receipt Date: 20041124
  Transmission Date: 20050328
  Serious: Yes (Hospitalization)
  Sender: FDA-Public Use
  Company Number: 163-20785-04110597

PATIENT
  Age: 65 Year
  Sex: Male
  Weight: 76.3 kg

DRUGS (8)
  1. THALOMID [Suspect]
     Indication: MULTIPLE MYELOMA
     Dosage: 50 MG, QHS, ORAL
     Route: 048
     Dates: start: 20041008, end: 20041019
  2. DOXIL [Suspect]
     Indication: MULTIPLE MYELOMA
     Dosage: 40 MG/M2, Q 28 DAYS, INTRAVENOUS
     Route: 042
     Dates: start: 20041008, end: 20041008
  3. DEXAMETHASONE [Suspect]
     Indication: MULTIPLE MYELOMA
     Dosage: 40 MG, DAYS 1-4 AND 15-18, ORAL
     Route: 048
     Dates: start: 20041008
  4. MS CONTIN [Concomitant]
  5. ACYCLOVIR [Concomitant]
  6. AMOXICILLIN [Concomitant]
  7. COREG [Concomitant]
  8. NORVASC [Concomitant]

REACTIONS (31)
  - ACIDOSIS [None]
  - ANOREXIA [None]
  - ANTICONVULSANT DRUG LEVEL INCREASED [None]
  - APNOEA [None]
  - ASTHENIA [None]
  - AZOTAEMIA [None]
  - BLOOD PHOSPHORUS INCREASED [None]
  - BLOOD SODIUM DECREASED [None]
  - COMA [None]
  - CONSTIPATION [None]
  - CONVULSION [None]
  - DEHYDRATION [None]
  - ELECTROCARDIOGRAM T WAVE PEAKED [None]
  - EPISTAXIS [None]
  - HAEMODIALYSIS [None]
  - HAEMOGLOBIN DECREASED [None]
  - HAEMOPTYSIS [None]
  - HYPERKALAEMIA [None]
  - HYPOXIA [None]
  - INCISION SITE HAEMORRHAGE [None]
  - NAUSEA [None]
  - NECK PAIN [None]
  - NEPHROPATHY TOXIC [None]
  - PLATELET FUNCTION TEST ABNORMAL [None]
  - PUPIL FIXED [None]
  - RENAL FAILURE [None]
  - RENAL TUBULAR NECROSIS [None]
  - THERAPY NON-RESPONDER [None]
  - URINARY INCONTINENCE [None]
  - URINARY TRACT INFECTION [None]
  - URINE OUTPUT INCREASED [None]
